FAERS Safety Report 20708573 (Version 4)
Quarter: 2022Q2

REPORT INFORMATION
  Report Type: Spontaneous
  Country: CH (occurrence: CH)
  Receive Date: 20220414
  Receipt Date: 20220510
  Transmission Date: 20220721
  Serious: No
  Sender: FDA-Public Use
  Company Number: CH-JNJFOC-20220316795

PATIENT
  Sex: Female

DRUGS (2)
  1. SIMPONI [Suspect]
     Active Substance: GOLIMUMAB
     Indication: Behcet^s syndrome
     Dosage: STRENGTH: 50.00 MG / 0.50 ML
     Route: 058
  2. SIMPONI [Suspect]
     Active Substance: GOLIMUMAB
     Dosage: 50.00 MG / 0.50 ML
     Route: 058

REACTIONS (5)
  - Injection site bruising [Unknown]
  - Product use in unapproved indication [Unknown]
  - Off label use [Unknown]
  - Device issue [Unknown]
  - Device leakage [Unknown]
